FAERS Safety Report 5880759-7 (Version None)
Quarter: 2008Q3

REPORT INFORMATION
  Report Type: 
  Country: None (occurrence: None)
  Receive Date: 20080912
  Receipt Date: 20080604
  Transmission Date: 20090109
  Serious: No
  Sender: FDA-Public Use
  Company Number: US-ABBOTT-08P-163-0456097-00

PATIENT
  Sex: Female
  Weight: 64.922 kg

DRUGS (8)
  1. HUMIRA [Suspect]
     Indication: COLITIS ULCERATIVE
     Route: 058
     Dates: start: 20070511
  2. HUMIRA [Suspect]
     Indication: OSTEOARTHRITIS
     Route: 058
     Dates: start: 20080410
  3. ACICHOL [Concomitant]
     Indication: COLITIS ULCERATIVE
     Route: 048
  4. ERGOCALCIFEROL [Concomitant]
     Indication: DRUG USE FOR UNKNOWN INDICATION
     Route: 048
  5. CALCIUM WITH VITAMIN D [Concomitant]
     Indication: DRUG USE FOR UNKNOWN INDICATION
     Route: 048
  6. IBANDRONATE SODIUM [Concomitant]
     Indication: DRUG USE FOR UNKNOWN INDICATION
     Route: 048
  7. MACROGOL [Concomitant]
     Indication: CONSTIPATION
     Route: 048
  8. LIMBROL [Concomitant]
     Indication: OSTEOARTHRITIS

REACTIONS (1)
  - DRUG EFFECT DECREASED [None]
